FAERS Safety Report 20447702 (Version 1)
Quarter: 2022Q1

REPORT INFORMATION
  Report Type: Spontaneous
  Country: US (occurrence: US)
  Receive Date: 20220209
  Receipt Date: 20220209
  Transmission Date: 20220423
  Serious: Yes (Other)
  Sender: FDA-Public Use
  Company Number: US-GILEAD-2022-0568572

PATIENT

DRUGS (1)
  1. ATRIPLA [Suspect]
     Active Substance: EFAVIRENZ\EMTRICITABINE\TENOFOVIR DISOPROXIL FUMARATE
     Indication: Product used for unknown indication
     Dosage: UNK
     Route: 048
     Dates: start: 20140512, end: 20190801

REACTIONS (6)
  - Osteoporosis [Unknown]
  - Multiple fractures [Unknown]
  - Osteonecrosis [Unknown]
  - Osteopenia [Unknown]
  - Bone loss [Unknown]
  - Bone density decreased [Unknown]
